FAERS Safety Report 21313102 (Version 2)
Quarter: 2022Q4

REPORT INFORMATION
  Report Type: Spontaneous
  Country: US (occurrence: None)
  Receive Date: 20220909
  Receipt Date: 20221018
  Transmission Date: 20230113
  Serious: Yes (Hospitalization, Other)
  Sender: FDA-Public Use
  Company Number: 2022A307558

PATIENT
  Age: 22925 Day
  Sex: Female
  Weight: 76.7 kg

DRUGS (2)
  1. BUDESONIDE\FORMOTEROL\GLYCOPYRRONIUM [Suspect]
     Active Substance: BUDESONIDE\FORMOTEROL\GLYCOPYRRONIUM
     Indication: Chronic obstructive pulmonary disease
     Dosage: 160/9/4.8 UG, 2 PUFFS TWICE EACH DAY
     Route: 055
  2. METFORMIN [Concomitant]
     Active Substance: METFORMIN HYDROCHLORIDE
     Indication: Diabetes mellitus

REACTIONS (16)
  - Illness [Recovered/Resolved]
  - Blood pressure increased [Recovered/Resolved]
  - Gait disturbance [Recovered/Resolved]
  - General physical health deterioration [Recovered/Resolved]
  - Candida infection [Recovered/Resolved]
  - Insomnia [Recovered/Resolved]
  - Chest discomfort [Not Recovered/Not Resolved]
  - Feeling abnormal [Not Recovered/Not Resolved]
  - Dyspnoea [Not Recovered/Not Resolved]
  - Decreased activity [Not Recovered/Not Resolved]
  - Pneumonia [Recovered/Resolved]
  - Blood glucose increased [Unknown]
  - Incorrect dose administered by device [Not Recovered/Not Resolved]
  - Device use issue [Not Recovered/Not Resolved]
  - Intentional device misuse [Not Recovered/Not Resolved]
  - Device delivery system issue [Unknown]

NARRATIVE: CASE EVENT DATE: 20210804
